FAERS Safety Report 7970654-1 (Version None)
Quarter: 2011Q4

REPORT INFORMATION
  Report Type: 
  Country: None (occurrence: None)
  Receive Date: 20111212
  Receipt Date: 20111207
  Transmission Date: 20120403
  Serious: Yes (Hospitalization, Other)
  Sender: FDA-Public Use
  Company Number: US-BAYER-201029693NA

PATIENT
  Age: 41 Year
  Sex: Female

DRUGS (4)
  1. BETASERON [Suspect]
     Dosage: 8 MIU, QOD
     Route: 058
     Dates: start: 20111121
  2. BETASERON [Suspect]
     Indication: RELAPSING-REMITTING MULTIPLE SCLEROSIS
     Dosage: BETAJECT
     Route: 058
     Dates: start: 20100330, end: 20100101
  3. BETASERON [Suspect]
     Dosage: BETAJECT
     Route: 058
     Dates: start: 20100101, end: 20111030
  4. OXYGEN [Concomitant]
     Indication: SLEEP APNOEA SYNDROME
     Dosage: AT NIGHT. NASAL CANULA
     Route: 045

REACTIONS (18)
  - TRANSIENT ISCHAEMIC ATTACK [None]
  - HYPOXIA [None]
  - FEELING ABNORMAL [None]
  - HALLUCINATION [None]
  - FEELING OF BODY TEMPERATURE CHANGE [None]
  - JOINT CREPITATION [None]
  - HYPOAESTHESIA [None]
  - LOSS OF CONSCIOUSNESS [None]
  - HEADACHE [None]
  - AMNESIA [None]
  - HALLUCINATION, VISUAL [None]
  - MULTIPLE SCLEROSIS RELAPSE [None]
  - MOBILITY DECREASED [None]
  - COMPLEX PARTIAL SEIZURES [None]
  - ARTHRALGIA [None]
  - CHEST PAIN [None]
  - CHILLS [None]
  - SLEEP APNOEA SYNDROME [None]
